FAERS Safety Report 4427953-X (Version None)
Quarter: 2004Q3

REPORT INFORMATION
  Report Type: 
  Country: None (occurrence: None)
  Receive Date: 20040726
  Receipt Date: 20040322
  Transmission Date: 20050211
  Serious: No
  Sender: FDA-Public Use
  Company Number: USA040362622

PATIENT
  Age: 81 Year
  Sex: Male
  Weight: 89 kg

DRUGS (13)
  1. FORTEO [Suspect]
     Indication: OSTEOPOROSIS
     Dosage: 20 UG/1 DAY
     Dates: start: 20040101
  2. NADOLOL [Concomitant]
  3. ASPIRIN [Concomitant]
  4. VITAMIN C [Concomitant]
  5. LASIX [Concomitant]
  6. LIPITOR [Concomitant]
  7. AVANDIA [Concomitant]
  8. VASOTEC [Concomitant]
  9. ZOLOFT [Concomitant]
  10. ELMIRON (PENTOSIN POLYSULFATE SODIUM) [Concomitant]
  11. SYNTHROID [Concomitant]
  12. NEURONTIN [Concomitant]
  13. DURAGESIC [Concomitant]

REACTIONS (3)
  - BREAST SWELLING [None]
  - NIPPLE PAIN [None]
  - OEDEMA PERIPHERAL [None]
